FAERS Safety Report 20977611 (Version 1)
Quarter: 2022Q2

REPORT INFORMATION
  Report Type: Spontaneous
  Country: US (occurrence: US)
  Receive Date: 20220618
  Receipt Date: 20220618
  Transmission Date: 20220721
  Serious: No
  Sender: FDA-Public Use
  Company Number: US-BRISTOL-MYERS SQUIBB COMPANY-2022-055982

PATIENT
  Age: 60 Year
  Sex: Male

DRUGS (1)
  1. REVLIMID [Suspect]
     Active Substance: LENALIDOMIDE
     Indication: Plasma cell myeloma
     Dosage: FREQ -  TAKE 1 CAPSULE (5MG) BY MOUTH EVERY DAY FOR 21 DAYS THEN OFF FOR 7 DAYS.
     Route: 048
     Dates: start: 20120207

REACTIONS (1)
  - Product dose omission issue [Unknown]
